FAERS Safety Report 6875951-9 (Version None)
Quarter: 2010Q3

REPORT INFORMATION
  Report Type: 
  Country: None (occurrence: None)
  Receive Date: 20100727
  Receipt Date: 20100726
  Transmission Date: 20110219
  Serious: Yes (Hospitalization)
  Sender: FDA-Public Use
  Company Number: NL-BAYER-201030338GPV

PATIENT
  Age: 58 Year
  Sex: Male

DRUGS (3)
  1. SORAFENIB [Suspect]
     Indication: METASTATIC RENAL CELL CARCINOMA
     Dosage: TOTAL DAILY DOSE: 400 MG  UNIT DOSE: 200 MG
     Route: 048
     Dates: start: 20100312, end: 20100527
  2. RASILEZ [Concomitant]
     Indication: HYPERTENSION
     Dates: start: 20100414
  3. NEORECORMON [Concomitant]
     Dosage: 10.000 ONCE A WEEK

REACTIONS (7)
  - ARTHRALGIA [None]
  - ARTHRITIS REACTIVE [None]
  - DISEASE PROGRESSION [None]
  - ECZEMA [None]
  - OEDEMA PERIPHERAL [None]
  - OSTEOARTHRITIS [None]
  - PYREXIA [None]
